FAERS Safety Report 11764466 (Version 1)
Quarter: 2015Q4

REPORT INFORMATION
  Report Type: Spontaneous
  Country: US (occurrence: US)
  Receive Date: 20151120
  Receipt Date: 20151120
  Transmission Date: 20160304
  Serious: No
  Sender: FDA-Public Use
  Company Number: US-ELI_LILLY_AND_COMPANY-US201301009460

PATIENT
  Age: 79 Year
  Sex: Female

DRUGS (3)
  1. FORTEO [Suspect]
     Active Substance: TERIPARATIDE
     Dosage: UNK, QD
     Dates: end: 201305
  2. FORTEO [Suspect]
     Active Substance: TERIPARATIDE
     Dosage: UNK, QD
  3. FORTEO [Suspect]
     Active Substance: TERIPARATIDE
     Indication: OSTEOPOROSIS
     Dosage: UNK UNK, QD
     Dates: start: 20121111

REACTIONS (10)
  - Spinal pain [Unknown]
  - Back pain [Unknown]
  - Pain in extremity [Recovering/Resolving]
  - Muscular weakness [Not Recovered/Not Resolved]
  - Muscle spasms [Unknown]
  - Neck pain [Unknown]
  - Musculoskeletal pain [Unknown]
  - Sleep disorder due to a general medical condition [Recovering/Resolving]
  - Malaise [Unknown]
  - Myalgia [Recovering/Resolving]

NARRATIVE: CASE EVENT DATE: 20130501
